FAERS Safety Report 13715763 (Version 2)
Quarter: 2017Q3

REPORT INFORMATION
  Report Type: Spontaneous
  Country: US (occurrence: US)
  Receive Date: 20170705
  Receipt Date: 20170727
  Transmission Date: 20171127
  Serious: Yes (Hospitalization, Other)
  Sender: FDA-Public Use
  Company Number: US-BRISTOL-MYERS SQUIBB COMPANY-BMS-2017-058305

PATIENT
  Sex: Female

DRUGS (3)
  1. ABILIFY [Suspect]
     Active Substance: ARIPIPRAZOLE
     Indication: MAJOR DEPRESSION
     Route: 065
  2. ABILIFY [Suspect]
     Active Substance: ARIPIPRAZOLE
     Indication: BIPOLAR DISORDER
     Dosage: 25 MG, BID
     Route: 065
     Dates: start: 200612, end: 20150101
  3. ABILIFY [Suspect]
     Active Substance: ARIPIPRAZOLE
     Indication: DEPRESSION
     Route: 065

REACTIONS (15)
  - Suicidal ideation [Unknown]
  - Stress [Unknown]
  - Off label use [Unknown]
  - Diabetes mellitus [Unknown]
  - Suicide attempt [Unknown]
  - Anxiety [Unknown]
  - Obsessive-compulsive disorder [Unknown]
  - Impulsive behaviour [Unknown]
  - Weight increased [Unknown]
  - Feeling guilty [Unknown]
  - Emotional distress [Unknown]
  - Hypersexuality [Unknown]
  - Pain [Unknown]
  - Prescribed overdose [Unknown]
  - Gambling [Unknown]
